FAERS Safety Report 25113410 (Version 2)
Quarter: 2025Q2

REPORT INFORMATION
  Report Type: Spontaneous
  Country: JP (occurrence: JP)
  Receive Date: 20250324
  Receipt Date: 20250522
  Transmission Date: 20250717
  Serious: Yes (Hospitalization, Other)
  Sender: MERCK SHARP & DOHME LLC
  Company Number: None

PATIENT
  Age: 75 Year
  Sex: Female
  Weight: 53 kg

DRUGS (27)
  1. KEYTRUDA [Suspect]
     Active Substance: PEMBROLIZUMAB
     Indication: Uterine cancer
     Route: 041
     Dates: start: 20230110, end: 20240222
  2. LENVATINIB MESYLATE [Suspect]
     Active Substance: LENVATINIB MESYLATE
     Indication: Uterine cancer
     Route: 048
     Dates: start: 20230110, end: 20240327
  3. RYBELSUS [Concomitant]
     Active Substance: SEMAGLUTIDE
     Route: 048
  4. REPAGLINIDE [Concomitant]
     Active Substance: REPAGLINIDE
     Route: 048
  5. MIGLITOL [Concomitant]
     Active Substance: MIGLITOL
     Route: 048
  6. ATORVASTATIN CALCIUM TRIHYDRATE [Concomitant]
     Active Substance: ATORVASTATIN CALCIUM TRIHYDRATE
     Route: 048
  7. CARVEDILOL [Concomitant]
     Active Substance: CARVEDILOL
     Route: 048
  8. NEXIUM [Concomitant]
     Active Substance: ESOMEPRAZOLE MAGNESIUM
     Route: 048
  9. AZOSEMIDE [Concomitant]
     Active Substance: AZOSEMIDE
     Route: 048
  10. ENTRESTO [Concomitant]
     Active Substance: SACUBITRIL\VALSARTAN
     Route: 048
  11. PRASUGREL HYDROCHLORIDE [Concomitant]
     Active Substance: PRASUGREL HYDROCHLORIDE
     Route: 048
  12. MIYA-BM [Concomitant]
     Active Substance: CLOSTRIDIUM BUTYRICUM SPORES STRAIN M-55
     Route: 048
  13. MAGNESIUM OXIDE [Concomitant]
     Active Substance: MAGNESIUM OXIDE
     Route: 048
  14. BELSOMRA [Concomitant]
     Active Substance: SUVOREXANT
     Route: 048
  15. NOVOLIN R [Concomitant]
     Active Substance: INSULIN HUMAN
     Route: 042
  16. CEFMETAZOLE SODIUM [Concomitant]
     Active Substance: CEFMETAZOLE SODIUM
     Route: 042
  17. CEFMETAZOLE SODIUM [Concomitant]
     Active Substance: CEFMETAZOLE SODIUM
     Route: 048
     Dates: start: 20240328, end: 20240409
  18. LEVOFLOXACIN HEMIHYDRATE [Concomitant]
     Active Substance: LEVOFLOXACIN
     Route: 048
  19. LEVOFLOXACIN HEMIHYDRATE [Concomitant]
     Active Substance: LEVOFLOXACIN
     Route: 048
     Dates: start: 20240409, end: 20240419
  20. URSODIOL [Concomitant]
     Active Substance: URSODIOL
     Route: 048
  21. URSODIOL [Concomitant]
     Active Substance: URSODIOL
     Dosage: DOSE DESCRIPTION : 150 MILLIGRAM, QD?DAILY DOSE : 150 MILLIGRAM?REGIMEN DOSE : 900  MILLIGRAM
     Route: 048
     Dates: start: 20240403, end: 20240408
  22. URSODIOL [Concomitant]
     Active Substance: URSODIOL
     Dosage: DOSE DESCRIPTION : 600 MILLIGRAM, QD?DAILY DOSE : 600 MILLIGRAM
     Route: 048
     Dates: start: 20240409
  23. ASPIRIN [Concomitant]
     Active Substance: ASPIRIN
     Route: 048
  24. ESOMEPRAZOLE MAGNESIUM [Concomitant]
     Active Substance: ESOMEPRAZOLE MAGNESIUM
     Route: 048
  25. RISEDRONATE SODIUM [Concomitant]
     Active Substance: RISEDRONATE SODIUM
     Route: 048
  26. MITIGLINIDE CALCIUM ANHYDROUS [Concomitant]
     Active Substance: MITIGLINIDE CALCIUM ANHYDROUS
     Route: 048
  27. AMITIZA [Concomitant]
     Active Substance: LUBIPROSTONE
     Route: 048

REACTIONS (3)
  - Cardiac failure chronic [Recovering/Resolving]
  - Renal impairment [Unknown]
  - Immune-mediated hepatic disorder [Recovering/Resolving]

NARRATIVE: CASE EVENT DATE: 20240308
